FAERS Safety Report 25449638 (Version 2)
Quarter: 2025Q3

REPORT INFORMATION
  Report Type: Spontaneous
  Country: US (occurrence: US)
  Receive Date: 20250618
  Receipt Date: 20250722
  Transmission Date: 20251020
  Serious: No
  Sender: ROCHE
  Company Number: US-ROCHE-10000315836

PATIENT
  Age: 35 Year
  Sex: Male

DRUGS (4)
  1. HEMLIBRA [Suspect]
     Active Substance: EMICIZUMAB-KXWH
     Indication: Coagulation factor deficiency
     Dosage: STRENGTH- 300MG/2ML
     Route: 058
  2. HEMLIBRA [Suspect]
     Active Substance: EMICIZUMAB-KXWH
     Dosage: STRENGTH- 300MG/2ML
     Route: 058
  3. ESPEROCT INJECTION [Concomitant]
  4. NOVOSEVEN RT MP (8000U) [Concomitant]

REACTIONS (5)
  - Haemorrhage [Unknown]
  - Abdominal pain [Unknown]
  - Haemorrhage [Unknown]
  - Joint swelling [Unknown]
  - Joint injury [Unknown]

NARRATIVE: CASE EVENT DATE: 20250101
